FAERS Safety Report 21233816 (Version 19)
Quarter: 2025Q2

REPORT INFORMATION
  Report Type: Report from Study
  Country: US (occurrence: US)
  Receive Date: 20220819
  Receipt Date: 20250516
  Transmission Date: 20250716
  Serious: Yes (Death, Life-Threatening, Hospitalization, Other)
  Sender: TAKEDA
  Company Number: US-TAKEDA-US201827730

PATIENT
  Age: 71 Year
  Sex: Female
  Weight: 48 kg

DRUGS (13)
  1. TEDUGLUTIDE [Suspect]
     Active Substance: TEDUGLUTIDE
     Indication: Short-bowel syndrome
     Dosage: UNK UNK, QD
     Dates: start: 201705, end: 20191117
  2. TEDUGLUTIDE [Suspect]
     Active Substance: TEDUGLUTIDE
     Indication: Malabsorption
     Dosage: UNK UNK, QD
     Dates: start: 20200319
  3. TEDUGLUTIDE [Suspect]
     Active Substance: TEDUGLUTIDE
     Indication: Post procedural complication
     Dosage: UNK UNK, QD
     Dates: start: 20230209
  4. TEDUGLUTIDE [Suspect]
     Active Substance: TEDUGLUTIDE
     Dosage: 0.12 MILLILITER, QD
  5. TEDUGLUTIDE [Suspect]
     Active Substance: TEDUGLUTIDE
     Dosage: 0.16 MILLILITER, QD
  6. TEDUGLUTIDE [Suspect]
     Active Substance: TEDUGLUTIDE
     Dosage: 0.121 MILLILITER, QD
  7. TEDUGLUTIDE [Suspect]
     Active Substance: TEDUGLUTIDE
     Dosage: 0.12 MILLILITER, QD
  8. TEDUGLUTIDE [Suspect]
     Active Substance: TEDUGLUTIDE
     Dosage: 0.12 MILLILITER, QD
  9. TEDUGLUTIDE [Suspect]
     Active Substance: TEDUGLUTIDE
     Dosage: 1.2 MILLIGRAM, QD
  10. TEDUGLUTIDE [Suspect]
     Active Substance: TEDUGLUTIDE
     Dosage: 1.2 MILLIGRAM, QD
  11. FOLIC ACID [Concomitant]
     Active Substance: FOLIC ACID
     Indication: Product used for unknown indication
  12. DOXYCYCLINE HYCLATE [Concomitant]
     Active Substance: DOXYCYCLINE HYCLATE
  13. CEPHALEXIN [Concomitant]
     Active Substance: CEPHALEXIN

REACTIONS (35)
  - Myocardial infarction [Fatal]
  - Pleural effusion [Unknown]
  - Swelling face [Recovered/Resolved]
  - Enterocutaneous fistula [Unknown]
  - Abdominal abscess [Unknown]
  - Pneumonia [Unknown]
  - Clostridium difficile infection [Unknown]
  - Renal tubular necrosis [Unknown]
  - Fluid imbalance [Recovered/Resolved]
  - Intestinal obstruction [Unknown]
  - Septic shock [Recovered/Resolved]
  - Acute kidney injury [Not Recovered/Not Resolved]
  - Klebsiella bacteraemia [Recovered/Resolved]
  - Superior vena cava syndrome [Unknown]
  - Respiratory failure [Recovered/Resolved]
  - Device related sepsis [Recovered/Resolved]
  - Vascular device infection [Recovered/Resolved]
  - Staphylococcal infection [Recovered/Resolved]
  - Cardiac arrest [Recovered/Resolved]
  - Injection site cellulitis [Unknown]
  - Device related bacteraemia [Unknown]
  - Peripheral swelling [Unknown]
  - Abdominal adhesions [Unknown]
  - Hernia [Unknown]
  - Complication associated with device [Unknown]
  - Illness [Recovering/Resolving]
  - Procedural vomiting [Unknown]
  - Increased appetite [Unknown]
  - Inappropriate schedule of product administration [Recovered/Resolved]
  - Hypovolaemia [Unknown]
  - Poor prognosis [Unknown]
  - Abdominal adhesions [Unknown]
  - Rib fracture [Unknown]
  - Lipase increased [Recovered/Resolved with Sequelae]
  - Amylase increased [Recovered/Resolved]

NARRATIVE: CASE EVENT DATE: 20240601
